FAERS Safety Report 6552470-0 (Version None)
Quarter: 2010Q1

REPORT INFORMATION
  Report Type: 
  Country: None (occurrence: None)
  Receive Date: 20100126
  Receipt Date: 20100120
  Transmission Date: 20100710
  Serious: Yes (Death, Hospitalization)
  Sender: FDA-Public Use
  Company Number: PHHO2009FR12653

PATIENT
  Sex: Female

DRUGS (2)
  1. AFINITOR [Suspect]
     Indication: ENDOMETRIAL CANCER METASTATIC
     Dosage: 10 MG/DAY
     Route: 048
     Dates: start: 20090721, end: 20091008
  2. INNOHEP [Concomitant]

REACTIONS (10)
  - ANAEMIA [None]
  - ARTERIAL THROMBOSIS LIMB [None]
  - ASCITES [None]
  - CARDIAC DISORDER [None]
  - DEATH [None]
  - ELECTROCARDIOGRAM ST SEGMENT DEPRESSION [None]
  - GENERAL PHYSICAL HEALTH DETERIORATION [None]
  - KLEBSIELLA SEPSIS [None]
  - MALIGNANT NEOPLASM PROGRESSION [None]
  - OXYGEN SATURATION DECREASED [None]
